FAERS Safety Report 12644405 (Version 1)
Quarter: 2016Q3

REPORT INFORMATION
  Report Type: Spontaneous
  Country: US (occurrence: US)
  Receive Date: 20160811
  Receipt Date: 20160811
  Transmission Date: 20161109
  Serious: No
  Sender: FDA-Public Use
  Company Number: US-009507513-1608USA003954

PATIENT
  Sex: Female
  Weight: 113.38 kg

DRUGS (1)
  1. NEXPLANON [Suspect]
     Active Substance: ETONOGESTREL
     Indication: CONTRACEPTION
     Dosage: ONE INSERTION
     Route: 059
     Dates: start: 20151029, end: 20160804

REACTIONS (3)
  - Pain in extremity [Unknown]
  - Nausea [Unknown]
  - Device breakage [Recovered/Resolved]
